FAERS Safety Report 8337434-9 (Version None)
Quarter: 2012Q1

REPORT INFORMATION
  Report Type: 
  Country: None (occurrence: None)
  Receive Date: 20120329
  Receipt Date: 20100714
  Transmission Date: 20120608
  Serious: Yes (Hospitalization)
  Sender: FDA-Public Use
  Company Number: PHHY2010US46535

PATIENT
  Age: 85 Year
  Sex: Female
  Weight: 145 kg

DRUGS (1)
  1. EXELON [Suspect]
     Dosage: 9.5 MG, QD, TRANSDERMAL
     Route: 062
     Dates: start: 20090901, end: 20100601

REACTIONS (1)
  - PANCREATITIS [None]
